FAERS Safety Report 20451926 (Version 1)
Quarter: 2022Q1

REPORT INFORMATION
  Report Type: Spontaneous
  Country: FR (occurrence: FR)
  Receive Date: 20220209
  Receipt Date: 20220209
  Transmission Date: 20220423
  Serious: Yes (Death)
  Sender: FDA-Public Use
  Company Number: None

PATIENT
  Sex: Male
  Weight: 0.8 kg

DRUGS (14)
  1. METRONIDAZOLE [Suspect]
     Active Substance: METRONIDAZOLE
     Indication: Appendicitis perforated
     Route: 064
     Dates: start: 20210810, end: 20210815
  2. CLAVULANIC ACID [Suspect]
     Active Substance: CLAVULANIC ACID
     Indication: Appendicitis perforated
     Route: 064
     Dates: start: 20210816, end: 20210817
  3. CEFOTAXIME SODIUM [Suspect]
     Active Substance: CEFOTAXIME SODIUM
     Indication: Appendicitis perforated
     Route: 064
     Dates: start: 20210810, end: 20210815
  4. SERTACONAZOLE NITRATE [Suspect]
     Active Substance: SERTACONAZOLE NITRATE
     Indication: Vulvovaginal mycotic infection
     Route: 064
     Dates: start: 20210804, end: 20210804
  5. ENOXAPARIN SODIUM [Suspect]
     Active Substance: ENOXAPARIN SODIUM
     Indication: Prophylaxis
     Dosage: ENOXAPARIN SODIUM ((MAMMAL/PIG/INTESTINAL MUCOSA))
     Route: 064
     Dates: start: 20210810, end: 20210816
  6. ACETAMINOPHEN [Suspect]
     Active Substance: ACETAMINOPHEN
     Indication: Pain
     Route: 064
     Dates: start: 20210808, end: 20210816
  7. PANTOPRAZOLE [Suspect]
     Active Substance: PANTOPRAZOLE
     Indication: Gastrooesophageal reflux disease
     Route: 064
     Dates: start: 20210815, end: 20210816
  8. AMOXICILLIN [Suspect]
     Active Substance: AMOXICILLIN
     Indication: Appendicitis perforated
     Route: 064
     Dates: start: 20210816, end: 20210817
  9. TRAMADOL HYDROCHLORIDE [Suspect]
     Active Substance: TRAMADOL HYDROCHLORIDE
     Indication: Pain
     Route: 064
     Dates: start: 20210808, end: 20210816
  10. LEVOTHYROXINE [Suspect]
     Active Substance: LEVOTHYROXINE
     Indication: COVID-19 immunisation
     Route: 064
     Dates: start: 20210505, end: 20211019
  11. PHLOROGLUCINOL [Suspect]
     Active Substance: PHLOROGLUCINOL
     Indication: Pain
     Route: 064
     Dates: start: 20210808, end: 20210816
  12. NEFOPAM HYDROCHLORIDE [Suspect]
     Active Substance: NEFOPAM HYDROCHLORIDE
     Indication: Pain
     Route: 064
     Dates: start: 20210810, end: 20210813
  13. ONDANSETRON HYDROCHLORIDE [Suspect]
     Active Substance: ONDANSETRON HYDROCHLORIDE
     Indication: Nausea
     Route: 064
     Dates: start: 20210810, end: 20210815
  14. ROPIVACAINE HYDROCHLORIDE [Suspect]
     Active Substance: ROPIVACAINE HYDROCHLORIDE
     Indication: Anaesthesia
     Dosage: NAROPEINE 2 MG/ML, SOLUTION FOR INJECTION IN AMPOULE
     Route: 064
     Dates: start: 20210810, end: 20210810

REACTIONS (1)
  - Urethral valves [Fatal]

NARRATIVE: CASE EVENT DATE: 20210929
